FAERS Safety Report 10683686 (Version 2)
Quarter: 2015Q1

REPORT INFORMATION
  Report Type: Spontaneous
  Country: US (occurrence: US)
  Receive Date: 20141230
  Receipt Date: 20150120
  Transmission Date: 20150720
  Serious: No
  Sender: FDA-Public Use
  Company Number: US-009507513-1412USA008654

PATIENT
  Age: 78 Year
  Sex: Male
  Weight: 86.17 kg

DRUGS (1)
  1. MIRALAX [Suspect]
     Active Substance: POLYETHYLENE GLYCOL 3350
     Indication: PRODUCT USED FOR UNKNOWN INDICATION
     Dosage: 17 G, QAM
     Route: 048
     Dates: start: 201411

REACTIONS (5)
  - Diarrhoea [Unknown]
  - Abdominal pain [Unknown]
  - Drug effect delayed [Unknown]
  - Incorrect drug administration duration [Unknown]
  - Faecal incontinence [Unknown]

NARRATIVE: CASE EVENT DATE: 201411
